FAERS Safety Report 13851547 (Version 2)
Quarter: 2017Q4

REPORT INFORMATION
  Report Type: Report from Study
  Country: RU (occurrence: RU)
  Receive Date: 20170810
  Receipt Date: 20171115
  Transmission Date: 20180320
  Serious: Yes (Life-Threatening, Hospitalization, Disabling, Other)
  Sender: FDA-Public Use
  Company Number: RU-ROCHE-1973820

PATIENT
  Age: 52 Year
  Sex: Male
  Weight: 73 kg

DRUGS (7)
  1. TOCILIZUMAB. [Suspect]
     Active Substance: TOCILIZUMAB
     Indication: RHEUMATOID ARTHRITIS
     Dosage: MOST RECENT DOSE PRIOR TO THE EVENT: 02/AUG/2017
     Route: 058
     Dates: start: 20161214
  2. L-THYROXIN [Concomitant]
     Active Substance: LEVOTHYROXINE SODIUM
     Route: 065
     Dates: start: 20020615
  3. FOLIC ACID. [Concomitant]
     Active Substance: FOLIC ACID
     Route: 065
     Dates: start: 20120615
  4. METHOTREXATUM [Concomitant]
     Active Substance: METHOTREXATE
     Route: 065
     Dates: start: 20120615
  5. PREDNISONE. [Suspect]
     Active Substance: PREDNISONE
     Indication: RHEUMATOID ARTHRITIS
     Dosage: MOST RECENT DOSE: 08/JUN/2017
     Route: 048
     Dates: start: 20170512
  6. PREDNISOLONUM [Concomitant]
     Active Substance: PREDNISOLONE
     Route: 065
     Dates: start: 20020615
  7. BLINDED PREDNISONE [Suspect]
     Active Substance: PREDNISONE
     Indication: RHEUMATOID ARTHRITIS
     Dosage: MOST RECENT DOSE PRIOR TO THE EVENT: 14/JUN/2017, 31/JUL/2017
     Route: 048
     Dates: start: 20170608

REACTIONS (2)
  - Pneumonia [Recovered/Resolved]
  - Cellulitis gangrenous [Recovered/Resolved with Sequelae]

NARRATIVE: CASE EVENT DATE: 20170804
